FAERS Safety Report 13103127 (Version 1)
Quarter: 2017Q1

REPORT INFORMATION
  Report Type: Spontaneous
  Country: US (occurrence: US)
  Receive Date: 20170110
  Receipt Date: 20170110
  Transmission Date: 20170428
  Serious: No
  Sender: FDA-Public Use
  Company Number: US-ECLAT PHARMACEUTICALS-2016ECL00062

PATIENT
  Sex: Female
  Weight: 70.3 kg

DRUGS (2)
  1. ACIPHEX [Suspect]
     Active Substance: RABEPRAZOLE SODIUM
     Indication: DYSPEPSIA
     Dosage: 1 DOSAGE UNITS, 1X/DAY
     Route: 048
  2. BIRTH CONTROL PILLS (UNSPECIFIED) [Concomitant]
     Active Substance: UNSPECIFIED INGREDIENT

REACTIONS (1)
  - Pharyngeal oedema [Recovered/Resolved]
